FAERS Safety Report 10028884 (Version 1)
Quarter: 2014Q1

REPORT INFORMATION
  Report Type: Spontaneous
  Country: US (occurrence: US)
  Receive Date: 20140321
  Receipt Date: 20140321
  Transmission Date: 20141002
  Serious: Yes (Other)
  Sender: FDA-Public Use
  Company Number: US-JNJFOC-20140307332

PATIENT
  Sex: Female
  Weight: 72.58 kg

DRUGS (11)
  1. TOPAMAX [Suspect]
     Indication: MIGRAINE
     Route: 048
  2. TOPIMAX [Suspect]
     Indication: HEADACHE
     Route: 048
  3. XANAX [Suspect]
     Indication: PAIN MANAGEMENT
     Route: 048
  4. XANAX [Suspect]
     Indication: PAIN MANAGEMENT
     Route: 048
  5. FLUOXETINE HCL [Suspect]
     Indication: DEPRESSION
     Route: 065
  6. PROMETHAZINE HCL [Suspect]
     Indication: PRODUCT USED FOR UNKNOWN INDICATION
     Route: 065
  7. RELPAX [Suspect]
     Indication: MIGRAINE
     Route: 065
  8. MOBIC [Suspect]
     Indication: HEADACHE
     Route: 065
     Dates: start: 20130809
  9. MOBIC [Suspect]
     Indication: HEADACHE
     Route: 065
  10. CO-ENZYME Q10 [Suspect]
     Indication: PRODUCT USED FOR UNKNOWN INDICATION
     Route: 065
     Dates: start: 20130809
  11. NORCO [Suspect]
     Indication: PAIN
     Dosage: DOSE:10-325
     Route: 065

REACTIONS (10)
  - Retinal tear [Unknown]
  - Uterine leiomyoma [Unknown]
  - Dysfunctional uterine bleeding [Unknown]
  - Migraine [Recovering/Resolving]
  - Pressure of speech [Unknown]
  - Chest pain [Unknown]
  - Back pain [Unknown]
  - Weight decreased [Unknown]
  - Anxiety [Not Recovered/Not Resolved]
  - Depression [Not Recovered/Not Resolved]
